FAERS Safety Report 5343968-1 (Version None)
Quarter: 2007Q2

REPORT INFORMATION
  Report Type: 
  Country: None (occurrence: None)
  Receive Date: 20070604
  Receipt Date: 20070522
  Transmission Date: 20071010
  Serious: Yes (Death)
  Sender: FDA-Public Use
  Company Number: JP-ROCHE-490156

PATIENT
  Age: 39 Year
  Sex: Male

DRUGS (1)
  1. OSELTAMIVIR [Suspect]
     Dosage: TOOK TWO CAPSULES.
     Route: 065
     Dates: start: 20050205

REACTIONS (1)
  - SUDDEN DEATH [None]
